FAERS Safety Report 8203708-5 (Version None)
Quarter: 2012Q1

REPORT INFORMATION
  Report Type: 
  Country: None (occurrence: None)
  Receive Date: 20120313
  Receipt Date: 20120305
  Transmission Date: 20120608
  Serious: Yes (Other)
  Sender: FDA-Public Use
  Company Number: US-BAYER-2012-022181

PATIENT
  Sex: Female

DRUGS (1)
  1. MIRENA [Suspect]
     Dosage: 20 MCG/24HR, CONT
     Dates: start: 20070401

REACTIONS (7)
  - AMENORRHOEA [None]
  - GENITAL HAEMORRHAGE [None]
  - ABDOMINAL PAIN [None]
  - HOT FLUSH [None]
  - FATIGUE [None]
  - EMOTIONAL DISORDER [None]
  - BREAST TENDERNESS [None]
